FAERS Safety Report 9244556 (Version 1)
Quarter: 2013Q2

REPORT INFORMATION
  Report Type: Spontaneous
  Country: US (occurrence: US)
  Receive Date: 20130422
  Receipt Date: 20130422
  Transmission Date: 20140414
  Serious: Yes (Other)
  Sender: FDA-Public Use
  Company Number: US-JNJFOC-20130408505

PATIENT
  Age: 30 Month
  Sex: Female

DRUGS (2)
  1. ZYRTEC CHILDREN^S ALLERGY [Suspect]
     Indication: PRODUCT USED FOR UNKNOWN INDICATION
     Dosage: 0.5 TEASPOON
     Route: 048
  2. ZYRTEC CHILDREN^S ALLERGY [Suspect]
     Indication: PRODUCT USED FOR UNKNOWN INDICATION
     Dosage: INCREASED FROM HALF TSP TO 1 TSP,
     Route: 048

REACTIONS (2)
  - Mental disorder [Unknown]
  - Abnormal behaviour [Unknown]
